FAERS Safety Report 18103872 (Version 1)
Quarter: 2020Q3

REPORT INFORMATION
  Report Type: Spontaneous
  Country: CA (occurrence: CA)
  Receive Date: 20200803
  Receipt Date: 20200803
  Transmission Date: 20201103
  Serious: Yes (Hospitalization)
  Sender: FDA-Public Use
  Company Number: CA-SA-2020SA197716

PATIENT

DRUGS (3)
  1. GENTAMICIN. [Concomitant]
     Active Substance: GENTAMICIN
  2. CEFAZOLIN [Suspect]
     Active Substance: CEFAZOLIN
     Indication: ENDOCARDITIS
     Dosage: 2000 MG
  3. RIFAMPICIN [Suspect]
     Active Substance: RIFAMPIN
     Dosage: 300 MG

REACTIONS (2)
  - Rash maculo-papular [Recovered/Resolved]
  - Blood creatinine increased [Recovered/Resolved]
